FAERS Safety Report 6927140-7 (Version None)
Quarter: 2010Q3

REPORT INFORMATION
  Report Type: 
  Country: None (occurrence: None)
  Receive Date: 20100816
  Receipt Date: 20100805
  Transmission Date: 20110219
  Serious: No
  Sender: FDA-Public Use
  Company Number: US-ABBOTT-10P-163-0662114-00

PATIENT
  Sex: Male
  Weight: 91.254 kg

DRUGS (2)
  1. SIMCOR [Suspect]
     Indication: HYPERLIPIDAEMIA
  2. ASPIRIN [Concomitant]
     Indication: PRODUCT USED FOR UNKNOWN INDICATION

REACTIONS (5)
  - FLUSHING [None]
  - FORMICATION [None]
  - MUSCULAR WEAKNESS [None]
  - SPONTANEOUS PENILE ERECTION [None]
  - VITAMIN D DEFICIENCY [None]
